FAERS Safety Report 6925442-1 (Version None)
Quarter: 2010Q3

REPORT INFORMATION
  Report Type: 
  Country: None (occurrence: None)
  Receive Date: 20100813
  Receipt Date: 20100813
  Transmission Date: 20110219
  Serious: Yes (Other)
  Sender: FDA-Public Use
  Company Number: None

PATIENT
  Age: 24 Year
  Sex: Male
  Weight: 68.0396 kg

DRUGS (2)
  1. RISPERIDONE [Suspect]
     Indication: AUTISM
     Dosage: THREE DAILY PO
     Route: 048
     Dates: start: 20070127, end: 20100814
  2. RISPERIDONE [Suspect]
     Indication: SCHIZOPHRENIA
     Dosage: THREE DAILY PO
     Route: 048
     Dates: start: 20070127, end: 20100814

REACTIONS (4)
  - AGITATION [None]
  - NERVOUSNESS [None]
  - TREMOR [None]
  - UNEVALUABLE EVENT [None]
